FAERS Safety Report 4411481-1 (Version None)
Quarter: 2004Q2

REPORT INFORMATION
  Report Type: 
  Country: None (occurrence: None)
  Receive Date: 20040630
  Receipt Date: 20040527
  Transmission Date: 20050107
  Serious: No
  Sender: FDA-Public Use
  Company Number: 04P-163-0262201-00

PATIENT
  Age: 53 Year
  Sex: Female
  Weight: 59.8748 kg

DRUGS (13)
  1. HUMIRA [Suspect]
     Indication: RHEUMATOID ARTHRITIS
     Dosage: 40 MG, 1 IN 2 WK, SUBCUTANEOUS
     Route: 058
     Dates: start: 20030901, end: 20031201
  2. HUMIRA [Suspect]
     Indication: RHEUMATOID ARTHRITIS
     Dosage: 40 MG, 1 IN 2 WK, SUBCUTANEOUS
     Route: 058
     Dates: start: 20040201, end: 20040301
  3. HUMIRA [Suspect]
     Indication: RHEUMATOID ARTHRITIS
     Dosage: 40 MG, 1 IN 2 WK, SUBCUTANEOUS
     Route: 058
     Dates: start: 20040401, end: 20040523
  4. METHOTREXATE SODIUM [Concomitant]
  5. PREDNISONE TAB [Concomitant]
  6. BUCINDOLOL HYDROCHLORIDE [Concomitant]
  7. LISINOPRIL [Concomitant]
  8. SINGULAIR [Concomitant]
  9. ADVAIR [Concomitant]
  10. PROVENTIL [Concomitant]
  11. NASOREL [Concomitant]
  12. ALAVERT [Concomitant]
  13. ALLERGY SHOT [Concomitant]

REACTIONS (6)
  - ASTHMA [None]
  - BRONCHIAL INFECTION [None]
  - DRUG INEFFECTIVE [None]
  - PNEUMONIA [None]
  - SKIN LACERATION [None]
  - WOUND INFECTION [None]
